FAERS Safety Report 6431295-0 (Version None)
Quarter: 2009Q4

REPORT INFORMATION
  Report Type: 
  Country: None (occurrence: None)
  Receive Date: 20091106
  Receipt Date: 20091103
  Transmission Date: 20100525
  Serious: Yes (Hospitalization)
  Sender: FDA-Public Use
  Company Number: US-GILEAD-2009-0025071

PATIENT
  Sex: Female
  Weight: 49.94 kg

DRUGS (19)
  1. LETAIRIS [Suspect]
     Indication: PULMONARY ARTERIAL HYPERTENSION
     Route: 048
     Dates: start: 20090427
  2. VENTAVIS [Concomitant]
  3. NITROLINGUAL [Concomitant]
  4. COUMADIN [Concomitant]
  5. LASIX [Concomitant]
  6. ASPIRIN [Concomitant]
  7. OXYGEN [Concomitant]
  8. PULMICORT [Concomitant]
  9. PERFORMIST [Concomitant]
  10. PHENOBARBITAL [Concomitant]
  11. MEGACE [Concomitant]
  12. ENBREL [Concomitant]
  13. NYSTATIN [Concomitant]
  14. PREDNISONE [Concomitant]
  15. METHOTREXATE [Concomitant]
  16. TYLENOL W/ CODEINE NO. 3 [Concomitant]
  17. DILANTIN [Concomitant]
  18. GLUCOPHAGE XR [Concomitant]
  19. FOLIC ACID [Concomitant]

REACTIONS (2)
  - FATIGUE [None]
  - MALAISE [None]
